FAERS Safety Report 18992228 (Version 1)
Quarter: 2021Q1

REPORT INFORMATION
  Report Type: Spontaneous
  Country: US (occurrence: US)
  Receive Date: 20210310
  Receipt Date: 20210310
  Transmission Date: 20210420
  Serious: No
  Sender: FDA-Public Use
  Company Number: None

PATIENT
  Age: 53 Year
  Sex: Female
  Weight: 150.75 kg

DRUGS (2)
  1. ISOVUE 370 [Concomitant]
     Active Substance: IOPAMIDOL
     Dates: start: 20210308, end: 20210308
  2. ISOVUE 370 [Suspect]
     Active Substance: IOPAMIDOL
     Indication: NEOPLASM MALIGNANT
     Route: 048
     Dates: start: 20210308, end: 20210308

REACTIONS (2)
  - Peripheral swelling [None]
  - Urticaria [None]

NARRATIVE: CASE EVENT DATE: 20210308
